FAERS Safety Report 5508624-5 (Version None)
Quarter: 2007Q4

REPORT INFORMATION
  Report Type: 
  Country: None (occurrence: None)
  Receive Date: 20071107
  Receipt Date: 20071106
  Transmission Date: 20080405
  Serious: Yes (Other)
  Sender: FDA-Public Use
  Company Number: JP-BRISTOL-MYERS SQUIBB COMPANY-13966155

PATIENT
  Age: 58 Year
  Sex: Female

DRUGS (9)
  1. TAXOL [Suspect]
     Indication: METASTASES TO LIVER
     Route: 041
  2. TAXOTERE [Concomitant]
     Route: 042
  3. TAMOXIFEN CITRATE [Concomitant]
     Route: 048
  4. TOREMIFENE [Concomitant]
     Route: 048
  5. ANASTROZOLE [Concomitant]
     Route: 048
  6. DISODIUM INCADRONATE [Concomitant]
     Route: 042
  7. MEDROXYPROGESTERONE ACETATE [Concomitant]
     Route: 048
  8. CAPECITABINE [Concomitant]
     Route: 048
  9. CYCLOPHOSPHAMIDE [Concomitant]

REACTIONS (1)
  - MYELODYSPLASTIC SYNDROME [None]
